FAERS Safety Report 20194493 (Version 1)
Quarter: 2021Q4

REPORT INFORMATION
  Report Type: Report from Study
  Country: TW (occurrence: TW)
  Receive Date: 20211216
  Receipt Date: 20211216
  Transmission Date: 20220303
  Serious: Yes (Other)
  Sender: FDA-Public Use
  Company Number: TW-MYLANLABS-2021M1093468

PATIENT
  Age: 1 Year
  Sex: Male

DRUGS (2)
  1. EPIRUBICIN [Suspect]
     Active Substance: EPIRUBICIN
     Indication: Hepatoblastoma
     Dosage: 7 COURSES; CE REGIMEN
     Route: 065
  2. CISPLATIN [Suspect]
     Active Substance: CISPLATIN
     Indication: Hepatoblastoma
     Dosage: 7 COURSES; CE REGIMEN
     Route: 065

REACTIONS (4)
  - Fanconi syndrome acquired [Recovered/Resolved]
  - Myelosuppression [Recovered/Resolved]
  - Drug ineffective [Unknown]
  - Off label use [Unknown]
